FAERS Safety Report 4906657-0 (Version None)
Quarter: 2006Q1

REPORT INFORMATION
  Report Type: 
  Country: None (occurrence: None)
  Receive Date: 20060207
  Receipt Date: 20060131
  Transmission Date: 20060701
  Serious: Yes (Death)
  Sender: FDA-Public Use
  Company Number: R301467-PRT06T-J

PATIENT
  Age: 81 Year
  Sex: Female

DRUGS (5)
  1. E3810 (RABEPRAZOLE) [Suspect]
     Indication: DUODENAL ULCER
     Dosage: 20 MG, 1 IN 1 D, ORAL
     Route: 048
     Dates: start: 20050725
  2. E3810 (RABEPRAZOLE) [Suspect]
     Indication: GASTRIC ULCER
     Dosage: 20 MG, 1 IN 1 D, ORAL
     Route: 048
     Dates: start: 20050725
  3. LORCAM (LORNOXICAM) [Concomitant]
  4. MUCOSTA (REBAMIPIDE) [Concomitant]
  5. UNASYN (SULTAMICILLIN TOSILATE) [Concomitant]

REACTIONS (3)
  - DISSEMINATED INTRAVASCULAR COAGULATION [None]
  - DUODENAL ULCER PERFORATION [None]
  - SEPSIS [None]
